FAERS Safety Report 25871439 (Version 3)
Quarter: 2025Q4

REPORT INFORMATION
  Report Type: Spontaneous
  Country: US (occurrence: US)
  Receive Date: 20251001
  Receipt Date: 20251215
  Transmission Date: 20260118
  Serious: Yes (Death, Hospitalization)
  Sender: TG THERAPEUTICS
  Company Number: US-TG THERAPEUTICS INC.-TGT006134

PATIENT
  Age: 41 Year

DRUGS (4)
  1. BRIUMVI [Suspect]
     Active Substance: UBLITUXIMAB-XIIY
     Indication: Relapsing-remitting multiple sclerosis
     Dosage: UNK
  2. BRIUMVI [Suspect]
     Active Substance: UBLITUXIMAB-XIIY
     Dosage: 450 MILLIGRAM, 24 WEEKS
  3. AJOVY [Concomitant]
     Active Substance: FREMANEZUMAB-VFRM
     Indication: Migraine prophylaxis
  4. SLYND [Concomitant]
     Active Substance: DROSPIRENONE
     Indication: Oral contraception
     Route: 061

REACTIONS (1)
  - Viral myocarditis [Fatal]
